FAERS Safety Report 6180572-X (Version None)
Quarter: 2009Q2

REPORT INFORMATION
  Report Type: 
  Country: None (occurrence: None)
  Receive Date: 20090504
  Receipt Date: 20090504
  Transmission Date: 20091009
  Serious: Yes (Hospitalization, Disabling)
  Sender: FDA-Public Use
  Company Number: None

PATIENT
  Age: 36 Year
  Sex: Female
  Weight: 49.4421 kg

DRUGS (7)
  1. BETASERON [Suspect]
     Indication: MULTIPLE SCLEROSIS
     Dosage: 1 EVERY OTHER DAY SUBCUTANE
     Route: 058
     Dates: start: 20081211, end: 20090116
  2. SOLU-MEDROL [Concomitant]
  3. TYLONOL [Concomitant]
  4. ZOFRAN [Concomitant]
  5. ADVAIR HFA [Concomitant]
  6. SINGULAIR [Concomitant]
  7. ZYRTEC [Concomitant]

REACTIONS (9)
  - ASTHENIA [None]
  - CHILLS [None]
  - DRUG INTOLERANCE [None]
  - INFLUENZA [None]
  - MALAISE [None]
  - NIGHT SWEATS [None]
  - PAIN [None]
  - PYREXIA [None]
  - VOMITING [None]
